FAERS Safety Report 10968714 (Version 1)
Quarter: 2015Q1

REPORT INFORMATION
  Report Type: Other
  Country: None (occurrence: US)
  Receive Date: 20150330
  Receipt Date: 20150330
  Transmission Date: 20150721
  Serious: No
  Sender: FDA-Public Use
  Company Number: US-LUPIN PHARMACEUTICALS INC.-2015-00004

PATIENT

DRUGS (1)
  1. DULOXETINE DELAYED-RELEASE 60 MG CAPSULES USP [Suspect]
     Active Substance: DULOXETINE
     Indication: NEURALGIA
     Route: 065

REACTIONS (3)
  - Neuralgia [Recovered/Resolved]
  - Product substitution issue [Recovered/Resolved]
  - Drug ineffective [Unknown]
